FAERS Safety Report 15563099 (Version 1)
Quarter: 2018Q4

REPORT INFORMATION
  Report Type: Spontaneous
  Country: DK (occurrence: DK)
  Receive Date: 20181029
  Receipt Date: 20181029
  Transmission Date: 20190205
  Serious: Yes (Disabling)
  Sender: FDA-Public Use
  Company Number: DK-MYLANLABS-2018M1080399

PATIENT
  Age: 13 Year
  Sex: Male

DRUGS (2)
  1. METHYLPHENIDATE SANDOZ [Suspect]
     Active Substance: METHYLPHENIDATE
     Indication: ATTENTION DEFICIT/HYPERACTIVITY DISORDER
     Dosage: 54 MG, QD
     Route: 048
     Dates: start: 20180412
  2. METHYLPHENIDATE MYLAN [Suspect]
     Active Substance: METHYLPHENIDATE HYDROCHLORIDE
     Indication: ATTENTION DEFICIT/HYPERACTIVITY DISORDER
     Dosage: 54 MG, QD
     Route: 048
     Dates: start: 20180308

REACTIONS (10)
  - Disturbance in attention [Recovered/Resolved]
  - Akathisia [Recovered/Resolved]
  - Aggression [Recovered/Resolved]
  - Drug ineffective [Recovered/Resolved]
  - Product substitution issue [Recovered/Resolved]
  - Depressed mood [Recovered/Resolved]
  - Negativism [Recovered/Resolved]
  - Personality disorder [Recovered/Resolved]
  - Anger [Recovered/Resolved]
  - Psychomotor hyperactivity [Recovered/Resolved]

NARRATIVE: CASE EVENT DATE: 20180308
